FAERS Safety Report 16162975 (Version 5)
Quarter: 2019Q3

REPORT INFORMATION
  Report Type: Spontaneous
  Country: US (occurrence: US)
  Receive Date: 20190405
  Receipt Date: 20190909
  Transmission Date: 20191004
  Serious: Yes (Hospitalization)
  Sender: FDA-Public Use
  Company Number: US-PFIZER INC-2019143608

PATIENT
  Age: 82 Year
  Sex: Female
  Weight: 114 kg

DRUGS (4)
  1. XELJANZ [Suspect]
     Active Substance: TOFACITINIB CITRATE
     Indication: RHEUMATOID ARTHRITIS
     Dosage: 5 MG, DAILY
     Route: 048
     Dates: start: 2018
  2. XELJANZ [Suspect]
     Active Substance: TOFACITINIB CITRATE
     Indication: INFLAMMATION
     Dosage: 5 MG, DAILY
     Dates: start: 201903
  3. PREDNISONE. [Concomitant]
     Active Substance: PREDNISONE
     Dosage: UNK
     Dates: start: 2008
  4. PREDNISONE. [Concomitant]
     Active Substance: PREDNISONE
     Dosage: 5 MG, DAILY

REACTIONS (6)
  - Eye oedema [Unknown]
  - Pre-existing condition improved [Recovered/Resolved]
  - Urticaria [Unknown]
  - Wheezing [Unknown]
  - Therapeutic response unexpected [Recovered/Resolved]
  - Rash erythematous [Recovering/Resolving]
